FAERS Safety Report 25357409 (Version 3)
Quarter: 2025Q3

REPORT INFORMATION
  Report Type: Spontaneous
  Country: US (occurrence: US)
  Receive Date: 20250526
  Receipt Date: 20250704
  Transmission Date: 20251020
  Serious: No
  Sender: ORGANON
  Company Number: US-ORGANON-O2504USA001730

PATIENT
  Age: 4 Year
  Sex: Female

DRUGS (1)
  1. ASMANEX [Suspect]
     Active Substance: MOMETASONE FUROATE
     Indication: Cough
     Dates: start: 20250413, end: 20250413

REACTIONS (3)
  - Foreign body in mouth [Recovered/Resolved]
  - Product use in unapproved indication [Unknown]
  - Device issue [Unknown]

NARRATIVE: CASE EVENT DATE: 20250413
